FAERS Safety Report 9587630 (Version 4)
Quarter: 2014Q1

REPORT INFORMATION
  Report Type: Spontaneous
  Country: US (occurrence: US)
  Receive Date: 20131003
  Receipt Date: 20140116
  Transmission Date: 20141002
  Serious: No
  Sender: FDA-Public Use
  Company Number: US-PFIZER INC-2013281747

PATIENT
  Age: 62 Year
  Sex: Male

DRUGS (1)
  1. CAVERJECT [Suspect]
     Dosage: 10-40 MCG PER INJECTION
     Dates: start: 20130501

REACTIONS (1)
  - Drug ineffective [Unknown]
